FAERS Safety Report 4338569-8 (Version None)
Quarter: 2004Q2

REPORT INFORMATION
  Report Type: 
  Country: None (occurrence: None)
  Receive Date: 20040407
  Receipt Date: 20040330
  Transmission Date: 20050107
  Serious: Yes (Hospitalization)
  Sender: FDA-Public Use
  Company Number: VISP-NO-0404S-0138

PATIENT
  Age: 46 Year
  Sex: Male

DRUGS (4)
  1. VISIPAQUE [Suspect]
     Indication: CORONARY ARTERY DISEASE
     Dosage: 100 ML, SINGLE DOSE, I.V.
     Route: 042
     Dates: start: 20031105, end: 20031105
  2. ABCIXIMAB (REOPRO) [Concomitant]
  3. METOPROLOL SUCCINATE (SELOKEN ZOC) [Concomitant]
  4. SIMVASTATIN [Concomitant]

REACTIONS (3)
  - CHILLS [None]
  - FEELING COLD [None]
  - THROMBOCYTOPENIA [None]
